FAERS Safety Report 9331069 (Version 1)
Quarter: 2013Q2

REPORT INFORMATION
  Report Type: Spontaneous
  Country: US (occurrence: US)
  Receive Date: 20130605
  Receipt Date: 20130605
  Transmission Date: 20140414
  Serious: Yes (Other)
  Sender: FDA-Public Use
  Company Number: US-BRISTOL-MYERS SQUIBB COMPANY-18959775

PATIENT
  Age: 81 Year
  Sex: Female
  Weight: 47.62 kg

DRUGS (7)
  1. ABATACEPT SUBQ INJECTION 125MG/ML [Suspect]
     Indication: RHEUMATOID ARTHRITIS
     Route: 058
     Dates: start: 201207, end: 201211
  2. HUMIRA [Concomitant]
  3. PREDNISONE [Concomitant]
  4. METHOTREXATE [Concomitant]
  5. OXYCODONE [Concomitant]
  6. DURAGESIC [Concomitant]
  7. FENTANYL [Concomitant]

REACTIONS (3)
  - Impaired healing [Unknown]
  - Bunion [Unknown]
  - Bronchitis [Unknown]
